FAERS Safety Report 5612847-4 (Version None)
Quarter: 2008Q1

REPORT INFORMATION
  Report Type: 
  Country: None (occurrence: None)
  Receive Date: 20080128
  Receipt Date: 20060511
  Transmission Date: 20080703
  Serious: Yes (Hospitalization)
  Sender: FDA-Public Use
  Company Number: PV06.0874

PATIENT
  Age: 75 Year
  Sex: Male

DRUGS (6)
  1. PAROXETINE [Suspect]
     Dosage: 20 MG,
  2. TRIHEXYPHENIDYL HCL [Concomitant]
  3. LEVOMEPROMAZINE (LEVOMEPROMAZINE) [Concomitant]
  4. QUAZEPAM [Concomitant]
  5. VALPROIC ACID [Concomitant]
  6. FLUNITRAZEPAM (FLUNITRAZEPAM) [Concomitant]

REACTIONS (7)
  - AGGRESSION [None]
  - DRUG INTERACTION [None]
  - DRUG TOXICITY [None]
  - HALLUCINATION, VISUAL [None]
  - HYPERKINESIA [None]
  - INSOMNIA [None]
  - RESTLESSNESS [None]
